FAERS Safety Report 20171547 (Version 1)
Quarter: 2021Q4

REPORT INFORMATION
  Report Type: Spontaneous
  Country: CN (occurrence: CN)
  Receive Date: 20211210
  Receipt Date: 20211210
  Transmission Date: 20220303
  Serious: Yes (Other)
  Sender: FDA-Public Use
  Company Number: CN-PFIZER INC-202101690379

PATIENT
  Age: 71 Year
  Sex: Female

DRUGS (1)
  1. NORVASC [Suspect]
     Active Substance: AMLODIPINE BESYLATE
     Dosage: UNK
     Route: 048

REACTIONS (5)
  - Angina pectoris [Unknown]
  - Headache [Unknown]
  - Discomfort [Unknown]
  - Suspected counterfeit product [Unknown]
  - Poor quality product administered [Unknown]
